FAERS Safety Report 9041177 (Version 1)
Quarter: 2013Q1

REPORT INFORMATION
  Report Type: Report from Study
  Country: US (occurrence: US)
  Receive Date: 20130129
  Receipt Date: 20130129
  Transmission Date: 20140127
  Serious: No
  Sender: FDA-Public Use
  Company Number: US-ABBOTT-12P-163-0899902-00

PATIENT
  Sex: Male
  Weight: 122.58 kg

DRUGS (9)
  1. HUMIRA 40 MG/0.8 ML PEN [Suspect]
     Indication: PSORIASIS
     Route: 058
     Dates: start: 201112
  2. HUMIRA 40 MG/0.8 ML PEN [Suspect]
     Indication: RHEUMATOID ARTHRITIS
  3. BLOOD PRESSURE MEDICATION [Suspect]
     Indication: HYPERTENSION
  4. ZYPREXA [Concomitant]
     Indication: DEPRESSION
  5. CELEXA [Concomitant]
     Indication: DEPRESSION
  6. ANTIHYPERTENSIVE [Concomitant]
     Indication: HYPERTENSION
  7. METHADONE [Concomitant]
     Indication: BACK DISORDER
  8. ROXYCODONE [Concomitant]
     Indication: BACK DISORDER
  9. ROXYCODONE [Concomitant]
     Indication: ILL-DEFINED DISORDER

REACTIONS (4)
  - Oedema [Unknown]
  - Joint swelling [Not Recovered/Not Resolved]
  - Local swelling [Not Recovered/Not Resolved]
  - Dyspnoea [Not Recovered/Not Resolved]
